FAERS Safety Report 16827944 (Version 2)
Quarter: 2019Q4

REPORT INFORMATION
  Report Type: Report from Study
  Country: US (occurrence: US)
  Receive Date: 20190919
  Receipt Date: 20191115
  Transmission Date: 20200122
  Serious: Yes (Other)
  Sender: FDA-Public Use
  Company Number: US-JNJFOC-20190823930

PATIENT
  Age: 52 Year
  Sex: Male

DRUGS (2)
  1. IMBRUVICA [Suspect]
     Active Substance: IBRUTINIB
     Indication: B-CELL SMALL LYMPHOCYTIC LYMPHOMA
     Dosage: 420 MG, QD
     Route: 048
     Dates: start: 20190604
  2. VENETOCLAX. [Suspect]
     Active Substance: VENETOCLAX
     Indication: B-CELL SMALL LYMPHOCYTIC LYMPHOMA
     Dosage: 400 MG, QD
     Route: 048
     Dates: start: 20190618

REACTIONS (5)
  - Fatigue [Unknown]
  - Joint stiffness [Unknown]
  - Disease progression [Unknown]
  - Contusion [Not Recovered/Not Resolved]
  - Arthralgia [Unknown]

NARRATIVE: CASE EVENT DATE: 201908
